FAERS Safety Report 4511675-0 (Version None)
Quarter: 2004Q4

REPORT INFORMATION
  Report Type: 
  Country: None (occurrence: None)
  Receive Date: 20041119
  Receipt Date: 20041109
  Transmission Date: 20050328
  Serious: Yes (Death, Hospitalization)
  Sender: FDA-Public Use
  Company Number: RS004790-J

PATIENT
  Age: 63 Year
  Sex: Male

DRUGS (1)
  1. RABEPRAZOLE SODIUM [Suspect]
     Indication: REFLUX OESOPHAGITIS
     Dosage: 20 MG, 1 IN 1 D, ORAL
     Route: 048
     Dates: start: 20040621, end: 20041017

REACTIONS (9)
  - CARDIOMYOPATHY [None]
  - CAROTID ARTERY ANEURYSM [None]
  - DIABETES INSIPIDUS [None]
  - DYSPNOEA [None]
  - FALL [None]
  - HAEMATOMA [None]
  - INTRAVENTRICULAR HAEMORRHAGE [None]
  - LABILE BLOOD PRESSURE [None]
  - SUBARACHNOID HAEMORRHAGE [None]
